FAERS Safety Report 9175778 (Version 1)
Quarter: 2013Q1

REPORT INFORMATION
  Report Type: Spontaneous
  Country: US (occurrence: US)
  Receive Date: 20130320
  Receipt Date: 20130320
  Transmission Date: 20140127
  Serious: Yes (Other)
  Sender: FDA-Public Use
  Company Number: CHPA2013US004990

PATIENT
  Age: 47 Year
  Sex: Male

DRUGS (2)
  1. PREVACID 24HR 15MG [Suspect]
     Indication: OESOPHAGEAL PAIN
     Dosage: 15 MG, QD
     Route: 048
     Dates: start: 20130316
  2. PREVACID 24HR 15MG [Suspect]
     Indication: GASTROOESOPHAGEAL REFLUX DISEASE

REACTIONS (3)
  - Haematospermia [Not Recovered/Not Resolved]
  - Dizziness [Not Recovered/Not Resolved]
  - Off label use [Unknown]
